FAERS Safety Report 14746709 (Version 2)
Quarter: 2018Q2

REPORT INFORMATION
  Report Type: Report from Study
  Country: TW (occurrence: TW)
  Receive Date: 20180411
  Receipt Date: 20180419
  Transmission Date: 20180711
  Serious: Yes (Other)
  Sender: FDA-Public Use
  Company Number: TW-ROCHE-GNE278677

PATIENT
  Age: 85 Year
  Sex: Female

DRUGS (9)
  1. ALTEPLASE. [Suspect]
     Active Substance: ALTEPLASE
     Indication: FIBRIN ABNORMAL
     Dosage: 25 MCG, SINGLE
     Route: 031
  2. PREDNISOLONE ACETATE. [Concomitant]
     Active Substance: PREDNISOLONE ACETATE
     Indication: PRODUCT USED FOR UNKNOWN INDICATION
     Route: 031
  3. GENTAMICIN EYE DROPS [Concomitant]
     Indication: PRODUCT USED FOR UNKNOWN INDICATION
     Route: 047
  4. CEFTAZIDIME. [Concomitant]
     Active Substance: CEFTAZIDIME
     Indication: ANTIBIOTIC THERAPY
     Dosage: 2.25 MG/0.1 CC,
     Route: 050
  5. VANCOMYCIN [Concomitant]
     Active Substance: VANCOMYCIN
     Indication: ANTIBIOTIC THERAPY
     Dosage: 1 MG/0.1 CC
     Route: 050
  6. ATROPINE SULFATE. [Concomitant]
     Active Substance: ATROPINE SULFATE
     Indication: PRODUCT USED FOR UNKNOWN INDICATION
     Route: 065
  7. XYLOCAINE [Concomitant]
     Active Substance: LIDOCAINE HYDROCHLORIDE
     Indication: ANAESTHESIA
     Route: 065
  8. CEFAZOLIN [Concomitant]
     Active Substance: CEFAZOLIN
     Indication: PRODUCT USED FOR UNKNOWN INDICATION
     Route: 047
  9. BETADINE [Concomitant]
     Active Substance: POVIDONE-IODINE
     Indication: SURGERY
     Route: 002

REACTIONS (2)
  - Hyphaema [Recovered/Resolved]
  - Macular hole [Unknown]
